FAERS Safety Report 6753042-5 (Version None)
Quarter: 2010Q2

REPORT INFORMATION
  Report Type: 
  Country: None (occurrence: None)
  Receive Date: 20100603
  Receipt Date: 20100521
  Transmission Date: 20101027
  Serious: No
  Sender: FDA-Public Use
  Company Number: US-DENTSPLY-2010-0059-EUR

PATIENT
  Age: 76 Year
  Weight: 81.72 kg

DRUGS (3)
  1. ORAQIX [Suspect]
     Dates: start: 20100520, end: 20100520
  2. AMLODIPINE [Concomitant]
  3. LISINOPRIL [Concomitant]

REACTIONS (3)
  - ANGIOEDEMA [None]
  - PRURITUS [None]
  - SWELLING [None]
